FAERS Safety Report 11545188 (Version 1)
Quarter: 2015Q3

REPORT INFORMATION
  Report Type: Spontaneous
  Country: US (occurrence: US)
  Receive Date: 20150924
  Receipt Date: 20150924
  Transmission Date: 20151125
  Serious: No
  Sender: FDA-Public Use
  Company Number: US-SIGMAPHARM LABORATORIES, LLC-2015SIG00027

PATIENT
  Age: 72 Year
  Sex: Female
  Weight: 44.44 kg

DRUGS (4)
  1. UNSPECIFIED SUPPLEMENTS [Concomitant]
  2. LIOTHYRONINE SODIUM. [Suspect]
     Active Substance: LIOTHYRONINE SODIUM
     Indication: THYROXINE DECREASED
     Dosage: 10 MCG, 1X/DAY
     Route: 048
  3. LIOTHYRONINE SODIUM. [Suspect]
     Active Substance: LIOTHYRONINE SODIUM
     Dosage: 5 MCG, 1X/DAY
     Route: 048
  4. LEVOTHYROXINE. [Concomitant]
     Active Substance: LEVOTHYROXINE

REACTIONS (1)
  - Blood triglycerides decreased [Unknown]

NARRATIVE: CASE EVENT DATE: 201506
